FAERS Safety Report 21763370 (Version 2)
Quarter: 2023Q1

REPORT INFORMATION
  Report Type: Spontaneous
  Country: JP (occurrence: JP)
  Receive Date: 20221221
  Receipt Date: 20230227
  Transmission Date: 20230417
  Serious: Yes (Other)
  Sender: FDA-Public Use
  Company Number: JP-002147023-NVSJ2022JP098070

PATIENT
  Age: 58 Year
  Sex: Female

DRUGS (2)
  1. BEOVU [Suspect]
     Active Substance: BROLUCIZUMAB-DBLL
     Indication: Age-related macular degeneration
     Dosage: 6 MG
     Route: 031
     Dates: start: 20220826, end: 20220826
  2. BEOVU [Suspect]
     Active Substance: BROLUCIZUMAB-DBLL
     Indication: Myopia

REACTIONS (12)
  - Uveitis [Recovered/Resolved]
  - Vitreous floaters [Recovering/Resolving]
  - Visual acuity reduced transiently [Recovered/Resolved]
  - Retinal vasculitis [Recovered/Resolved]
  - Retinal haemorrhage [Recovered/Resolved]
  - Choroidal neovascularisation [Unknown]
  - Keratic precipitates [Unknown]
  - Vitreous opacities [Recovered/Resolved]
  - Ocular hyperaemia [Recovering/Resolving]
  - Vision blurred [Recovering/Resolving]
  - Iritis [Recovered/Resolved]
  - Eye inflammation [Unknown]

NARRATIVE: CASE EVENT DATE: 20220905
